FAERS Safety Report 4410800-X (Version None)
Quarter: 2004Q3

REPORT INFORMATION
  Report Type: 
  Country: None (occurrence: None)
  Receive Date: 20040729
  Receipt Date: 20040722
  Transmission Date: 20050211
  Serious: Yes (Hospitalization)
  Sender: FDA-Public Use
  Company Number: GB-MERCK-0407GBR00224

PATIENT
  Age: 82 Year
  Sex: Female

DRUGS (9)
  1. ACETAMINOPHEN [Concomitant]
     Route: 048
  2. ASPIRIN [Concomitant]
     Indication: AGE INDETERMINATE MYOCARDIAL INFARCTION
     Route: 048
     Dates: start: 20040201
  3. DIGOXIN [Concomitant]
     Indication: ATRIAL FIBRILLATION
     Route: 048
  4. DILTIAZEM HYDROCHLORIDE [Concomitant]
     Indication: HYPERTENSION
     Route: 048
  5. FLUOXETINE [Concomitant]
     Indication: DEPRESSION
     Route: 048
     Dates: end: 20040628
  6. FUROSEMIDE [Concomitant]
     Route: 065
  7. RAMIPRIL [Concomitant]
     Route: 065
  8. ZOCOR [Suspect]
     Indication: BLOOD CHOLESTEROL INCREASED
     Route: 048
     Dates: end: 20040628
  9. SPIRONOLACTONE [Concomitant]
     Route: 065
     Dates: end: 20040628

REACTIONS (3)
  - CIRCULATORY COLLAPSE [None]
  - PAIN IN EXTREMITY [None]
  - URINARY TRACT INFECTION [None]
